FAERS Safety Report 5620696-6 (Version None)
Quarter: 2008Q1

REPORT INFORMATION
  Report Type: 
  Country: None (occurrence: None)
  Receive Date: 20080208
  Receipt Date: 20080131
  Transmission Date: 20080703
  Serious: Yes (Hospitalization)
  Sender: FDA-Public Use
  Company Number: DE-ABBOTT-08P-062-0436268-00

PATIENT
  Sex: Female
  Weight: 58.6 kg

DRUGS (2)
  1. HUMIRA [Suspect]
     Indication: CROHN'S DISEASE
     Route: 058
     Dates: start: 20070301
  2. HUMIRA [Suspect]
     Route: 058
     Dates: start: 20070309, end: 20070309

REACTIONS (1)
  - ILEECTOMY [None]
